FAERS Safety Report 15129131 (Version 2)
Quarter: 2018Q4

REPORT INFORMATION
  Report Type: Spontaneous
  Country: US (occurrence: US)
  Receive Date: 20180711
  Receipt Date: 20181003
  Transmission Date: 20190204
  Serious: No
  Sender: FDA-Public Use
  Company Number: US-PFIZER INC-2018203656

PATIENT
  Age: 63 Year
  Sex: Female

DRUGS (2)
  1. IBRANCE [Suspect]
     Active Substance: PALBOCICLIB
     Dosage: 100 MG, CYCLIC (21 DAYS FOLLOWED BY A 7 DAY BREAK)
     Route: 048
     Dates: start: 201804, end: 20180627
  2. IBRANCE [Suspect]
     Active Substance: PALBOCICLIB
     Indication: BREAST CANCER FEMALE
     Dosage: 125 MG, CYCLIC (21 DAYS IN A ROW THEN STOP FOR 7 DAYS)
     Route: 048
     Dates: start: 201804

REACTIONS (8)
  - White blood cell count decreased [Unknown]
  - Alopecia [Unknown]
  - Fatigue [Unknown]
  - Asthenia [Unknown]
  - Dyspnoea exertional [Unknown]
  - Constipation [Recovered/Resolved]
  - Red blood cell count decreased [Unknown]
  - Epistaxis [Unknown]
